FAERS Safety Report 8914687 (Version 2)
Quarter: 2013Q1

REPORT INFORMATION
  Report Type: Report from Study
  Country: JP (occurrence: JP)
  Receive Date: 20121119
  Receipt Date: 20130313
  Transmission Date: 20140127
  Serious: Yes (Hospitalization)
  Sender: FDA-Public Use
  Company Number: JP-009507513-1208JPN004826

PATIENT
  Age: 25 Year
  Sex: Male
  Weight: 74 kg

DRUGS (8)
  1. ASENAPINE MALEATE-SCHIZOPHRENIA [Suspect]
     Indication: SCHIZOPHRENIA
     Dosage: UNK, ASENAPINE 5MG OR 10 MG OR PLACEBO
     Route: 060
     Dates: start: 20120802, end: 20120814
  2. ASENAPINE MALEATE-SCHIZOPHRENIA [Suspect]
     Dosage: UNK, ASENAPINE 5MG OR 10MG
     Route: 060
     Dates: start: 20120814, end: 20120911
  3. ASENAPINE MALEATE-SCHIZOPHRENIA [Suspect]
     Indication: SCHIZOPHRENIA
     Dosage: 20 MG, QD
     Route: 060
     Dates: start: 20120911, end: 20121015
  4. BROTIZOLAM [Concomitant]
     Indication: INSOMNIA
     Dosage: 0.25 MG, QD, FORMULATION: POR
     Route: 048
     Dates: start: 20120620, end: 20121015
  5. LORAZEPAM [Concomitant]
     Indication: IRRITABILITY
     Dosage: 1 MG, SINGLE USE (UP TO 3 DAY TIME), FORMULATION: POR, AS NEEDED
     Route: 048
     Dates: start: 20120614, end: 20121015
  6. PALIPERIDONE [Concomitant]
     Indication: SCHIZOPHRENIA
     Dosage: 3 MG, QD, FORMULATION: POR
     Route: 048
     Dates: start: 20121016, end: 20121025
  7. PALIPERIDONE [Concomitant]
     Dosage: 6 MG, QD
     Route: 048
     Dates: start: 20121026, end: 20121112
  8. DIAZEPAM [Concomitant]
     Indication: RESTLESSNESS
     Dosage: 15 MG, QD, FORMULATION: POR
     Route: 048
     Dates: start: 20121016

REACTIONS (3)
  - Schizophrenia [Recovered/Resolved]
  - Schizophrenia [Recovered/Resolved]
  - Medication error [Unknown]
